FAERS Safety Report 25064280 (Version 1)
Quarter: 2025Q1

REPORT INFORMATION
  Report Type: Report from Study
  Country: US (occurrence: US)
  Receive Date: 20250311
  Receipt Date: 20250311
  Transmission Date: 20250408
  Serious: No
  Sender: BLUEBIRD BIO
  Company Number: US-BLUEBIRD BIO-US-BBB-24-00078

PATIENT
  Age: 9 Year
  Sex: Female
  Weight: 21.1 kg

DRUGS (70)
  1. ZYNTEGLO [Suspect]
     Active Substance: BETIBEGLOGENE AUTOTEMCEL
     Indication: Thalassaemia beta
     Route: 042
     Dates: start: 20230628, end: 20230628
  2. MOBOZIL [Concomitant]
     Indication: Haematopoietic stem cell mobilisation
     Dosage: UNK, QD
     Route: 042
  3. FILGRASTIM [Concomitant]
     Active Substance: FILGRASTIM
     Indication: Haematopoietic stem cell mobilisation
     Dosage: 300 MCG/ML
     Route: 065
     Dates: start: 20230217, end: 20230220
  4. BUSULFAN [Concomitant]
     Active Substance: BUSULFAN
     Indication: Bone marrow conditioning regimen
     Dosage: 3.2 MILLIGRAM/KILOGRAM, QD
     Route: 042
     Dates: start: 20230622, end: 20230625
  5. DEXTROSE [Concomitant]
     Active Substance: DEXTROSE MONOHYDRATE
     Indication: Product used for unknown indication
     Route: 042
     Dates: start: 20230621, end: 20230629
  6. DEXTROSE [Concomitant]
     Active Substance: DEXTROSE MONOHYDRATE
     Dosage: 195 MILLIGRAM, QD
     Route: 042
     Dates: start: 20230629, end: 20230709
  7. DEXTROSE [Concomitant]
     Active Substance: DEXTROSE MONOHYDRATE
     Route: 042
     Dates: start: 20230629, end: 20230810
  8. LEVOFLOXACIN [Concomitant]
     Active Substance: LEVOFLOXACIN
     Indication: Product used for unknown indication
     Dosage: 200 MILLIGRAM, QD
     Route: 048
     Dates: start: 20230626, end: 20230628
  9. LEVOFLOXACIN [Concomitant]
     Active Substance: LEVOFLOXACIN
     Dosage: 195 MILLIGRAM, QD
     Route: 042
     Dates: start: 20230629, end: 20230709
  10. LEVETIRACETAM [Concomitant]
     Active Substance: LEVETIRACETAM
     Indication: Product used for unknown indication
     Dosage: 200 MILLIGRAM, BID
     Route: 048
     Dates: start: 20230621, end: 20230627
  11. PENTAMIDINE [Concomitant]
     Active Substance: PENTAMIDINE
     Indication: Product used for unknown indication
     Route: 042
     Dates: start: 20230621, end: 20230810
  12. DIPHENHYDRAMINE [Concomitant]
     Active Substance: DIPHENHYDRAMINE
     Indication: Product used for unknown indication
     Dosage: 20 MILLIGRAM, Q6H PRN
     Route: 042
     Dates: start: 20230621, end: 20230627
  13. DIPHENHYDRAMINE [Concomitant]
     Active Substance: DIPHENHYDRAMINE
     Route: 042
     Dates: start: 20230628, end: 20230628
  14. DIPHENHYDRAMINE [Concomitant]
     Active Substance: DIPHENHYDRAMINE
     Dosage: 15 MILLIGRAM, Q6H PRN
     Route: 042
     Dates: start: 20230628, end: 20230630
  15. DIPHENHYDRAMINE [Concomitant]
     Active Substance: DIPHENHYDRAMINE
     Dosage: 15 MILLIGRAM, Q6H PRN
     Route: 042
     Dates: start: 20230630, end: 20230810
  16. PROCHLORPERAZINE [Concomitant]
     Active Substance: PROCHLORPERAZINE
     Indication: Product used for unknown indication
     Dosage: 2 MILLIGRAM, Q6H PRN
     Route: 042
     Dates: start: 20230621, end: 20230627
  17. PROCHLORPERAZINE [Concomitant]
     Active Substance: PROCHLORPERAZINE
     Dosage: 1 MILLIGRAM, Q6H PRN
     Route: 042
     Dates: start: 20230621, end: 20230627
  18. PROCHLORPERAZINE [Concomitant]
     Active Substance: PROCHLORPERAZINE
     Dosage: 1 MILLIGRAM, Q6H PRN
     Route: 042
     Dates: start: 20230627, end: 20230810
  19. EMEND [Concomitant]
     Active Substance: APREPITANT
     Indication: Product used for unknown indication
     Dosage: 40 MILLIGRAM, QD
     Route: 048
     Dates: start: 20230622, end: 20230624
  20. EMEND [Concomitant]
     Active Substance: APREPITANT
     Route: 048
     Dates: start: 20230622, end: 20230622
  21. ONDANSETRON [Concomitant]
     Active Substance: ONDANSETRON
     Indication: Product used for unknown indication
     Dosage: 3 MILLIGRAM, Q8H
     Route: 042
     Dates: start: 20230622, end: 20230627
  22. ONDANSETRON [Concomitant]
     Active Substance: ONDANSETRON
     Dosage: 2 MILLIGRAM, Q8H PRN
     Route: 042
     Dates: start: 20230630, end: 20230702
  23. ONDANSETRON [Concomitant]
     Active Substance: ONDANSETRON
     Dosage: 2 MILLIGRAM, Q8H PRN
     Route: 042
     Dates: start: 20230702, end: 20230802
  24. BACITRACIN ZINC AND POLYMYXIN B SULFATE [Concomitant]
     Active Substance: BACITRACIN ZINC\POLYMYXIN B SULFATE
     Indication: Product used for unknown indication
     Route: 047
     Dates: start: 20230621, end: 20230810
  25. CETIRIZINE [Concomitant]
     Active Substance: CETIRIZINE HYDROCHLORIDE
     Indication: Product used for unknown indication
     Route: 048
     Dates: start: 20230621, end: 20230810
  26. FLOVENT HFA [Concomitant]
     Active Substance: FLUTICASONE PROPIONATE
     Indication: Product used for unknown indication
     Dosage: 2 PUFF(S), BID
     Dates: start: 20230621, end: 20230810
  27. MELATONIN [Concomitant]
     Active Substance: MELATONIN
     Indication: Product used for unknown indication
     Route: 048
     Dates: start: 20230621, end: 20230714
  28. TRIAMCINOLONE ACETONIDE [Concomitant]
     Active Substance: TRIAMCINOLONE ACETONIDE
     Indication: Product used for unknown indication
     Dosage: UNK, BID PRN
     Route: 061
     Dates: start: 20230621, end: 20230810
  29. ACETAMINOPHEN [Concomitant]
     Active Substance: ACETAMINOPHEN
     Indication: Product used for unknown indication
     Dosage: 300.8 MILLIGRAM, QD
     Route: 048
     Dates: start: 20230628, end: 20230628
  30. ACETAMINOPHEN [Concomitant]
     Active Substance: ACETAMINOPHEN
     Dosage: 294.4 MILLIGRAM, Q4H PRN
     Route: 048
     Dates: start: 20230703, end: 20230726
  31. ACYCLOVIR [Concomitant]
     Active Substance: ACYCLOVIR
     Indication: Product used for unknown indication
     Dosage: 200 MILLIGRAM, Q8H
     Route: 042
     Dates: start: 20230621, end: 20230718
  32. CHLORHEXIDINE [Concomitant]
     Active Substance: CHLORHEXIDINE
     Indication: Product used for unknown indication
     Dosage: 15 MILLILITER, TID, SWISH + SPIT
     Dates: start: 20230621, end: 20230810
  33. FLUCONAZOLE [Concomitant]
     Active Substance: FLUCONAZOLE
     Indication: Product used for unknown indication
     Dosage: 120 MILLIGRAM, QD
     Route: 042
     Dates: start: 20230621, end: 20230718
  34. ENDARI [Concomitant]
     Active Substance: GLUTAMINE
     Indication: Product used for unknown indication
     Dosage: 2.39 GRAM, BID
     Route: 048
     Dates: start: 20230621, end: 20230704
  35. COLLOIDAL OATMEAL [Concomitant]
     Active Substance: OATMEAL
     Indication: Product used for unknown indication
     Dosage: UNK, Q2H PRN
     Route: 048
     Dates: start: 20230621, end: 20230810
  36. PHYTONADIONE [Concomitant]
     Active Substance: PHYTONADIONE
     Indication: Product used for unknown indication
     Route: 048
     Dates: start: 20230623, end: 20230718
  37. URSODIOL [Concomitant]
     Active Substance: URSODIOL
     Indication: Product used for unknown indication
     Dosage: 96 MILLIGRAM, BID
     Route: 048
     Dates: start: 20230622, end: 20230727
  38. AMINO ACIDS\CARBOHYDRATES\MINERALS\VITAMINS [Concomitant]
     Active Substance: AMINO ACIDS\CARBOHYDRATES\MINERALS\VITAMINS
     Indication: Product used for unknown indication
     Route: 042
     Dates: start: 20230627, end: 20230628
  39. AMINO ACIDS\CARBOHYDRATES\MINERALS\VITAMINS [Concomitant]
     Active Substance: AMINO ACIDS\CARBOHYDRATES\MINERALS\VITAMINS
     Route: 042
     Dates: start: 20230628, end: 20230629
  40. AMINO ACIDS\CARBOHYDRATES\MINERALS\VITAMINS [Concomitant]
     Active Substance: AMINO ACIDS\CARBOHYDRATES\MINERALS\VITAMINS
     Route: 042
     Dates: start: 20230629, end: 20230630
  41. AMINO ACIDS\CARBOHYDRATES\MINERALS\VITAMINS [Concomitant]
     Active Substance: AMINO ACIDS\CARBOHYDRATES\MINERALS\VITAMINS
     Route: 042
     Dates: start: 20230630, end: 20230701
  42. AMINO ACIDS\CARBOHYDRATES\MINERALS\VITAMINS [Concomitant]
     Active Substance: AMINO ACIDS\CARBOHYDRATES\MINERALS\VITAMINS
     Route: 042
     Dates: start: 20230701, end: 20230702
  43. AMINO ACIDS\CARBOHYDRATES\MINERALS\VITAMINS [Concomitant]
     Active Substance: AMINO ACIDS\CARBOHYDRATES\MINERALS\VITAMINS
     Route: 042
     Dates: start: 20230702, end: 20230703
  44. AMINO ACIDS\CARBOHYDRATES\MINERALS\VITAMINS [Concomitant]
     Active Substance: AMINO ACIDS\CARBOHYDRATES\MINERALS\VITAMINS
     Route: 042
     Dates: start: 20230703, end: 20230704
  45. AMINO ACIDS\CARBOHYDRATES\MINERALS\VITAMINS [Concomitant]
     Active Substance: AMINO ACIDS\CARBOHYDRATES\MINERALS\VITAMINS
     Route: 042
     Dates: start: 20230704, end: 20230705
  46. AMINO ACIDS\CARBOHYDRATES\MINERALS\VITAMINS [Concomitant]
     Active Substance: AMINO ACIDS\CARBOHYDRATES\MINERALS\VITAMINS
     Route: 042
     Dates: start: 20230705, end: 20230706
  47. AMINO ACIDS\CARBOHYDRATES\MINERALS\VITAMINS [Concomitant]
     Active Substance: AMINO ACIDS\CARBOHYDRATES\MINERALS\VITAMINS
     Route: 042
     Dates: start: 20230706, end: 20230707
  48. SOYBEAN OIL [Concomitant]
     Active Substance: SOYBEAN OIL
     Indication: Product used for unknown indication
     Dates: start: 20230627, end: 20230628
  49. SOYBEAN OIL [Concomitant]
     Active Substance: SOYBEAN OIL
     Dates: start: 20230628, end: 20230629
  50. SOYBEAN OIL [Concomitant]
     Active Substance: SOYBEAN OIL
     Dates: start: 20230629, end: 20230630
  51. SOYBEAN OIL [Concomitant]
     Active Substance: SOYBEAN OIL
     Dates: start: 20230630, end: 20230701
  52. SOYBEAN OIL [Concomitant]
     Active Substance: SOYBEAN OIL
     Dates: start: 20230701, end: 20230702
  53. SOYBEAN OIL [Concomitant]
     Active Substance: SOYBEAN OIL
     Dates: start: 20230702, end: 20230703
  54. SOYBEAN OIL [Concomitant]
     Active Substance: SOYBEAN OIL
     Dates: start: 20230703, end: 20230704
  55. SOYBEAN OIL [Concomitant]
     Active Substance: SOYBEAN OIL
     Dates: start: 20230704, end: 20230705
  56. SOYBEAN OIL [Concomitant]
     Active Substance: SOYBEAN OIL
     Dates: start: 20230705, end: 20230706
  57. SOYBEAN OIL [Concomitant]
     Active Substance: SOYBEAN OIL
     Dates: start: 20230706, end: 20230707
  58. OXYCODONE [Concomitant]
     Active Substance: OXYCODONE
     Indication: Product used for unknown indication
     Dosage: 3 MILLIGRAM, Q4H PRN
     Route: 048
     Dates: start: 20230630, end: 20230704
  59. LORAZEPAM [Concomitant]
     Active Substance: LORAZEPAM
     Indication: Product used for unknown indication
     Dosage: 0.5 MILLIGRAM, Q6H PRN
     Route: 042
     Dates: start: 20230630, end: 20230707
  60. SODIUM CHLORIDE [Concomitant]
     Active Substance: SODIUM CHLORIDE
     Indication: Product used for unknown indication
     Dosage: 2 SPRAY(S), NOSTRIL (EACH), Q4H
     Route: 045
     Dates: start: 20230702, end: 20230703
  61. SODIUM CHLORIDE [Concomitant]
     Active Substance: SODIUM CHLORIDE
     Dosage: 2 SPRAY(S), NOSTRIL (EACH), TID
     Route: 045
     Dates: start: 20230703, end: 20230810
  62. RECOTHROM [Concomitant]
     Active Substance: THROMBIN ALFA
     Indication: Product used for unknown indication
     Dosage: UNK, Q12H PRN
     Route: 061
     Dates: start: 20230702, end: 20230723
  63. MILK OF MAGNESIA [Concomitant]
     Active Substance: MAGNESIUM HYDROXIDE
     Indication: Product used for unknown indication
     Route: 048
     Dates: start: 20230703, end: 20230703
  64. MORPHINE [Concomitant]
     Active Substance: MORPHINE
     Indication: Product used for unknown indication
     Dosage: 2 MILLIGRAM, Q4H
     Route: 042
     Dates: start: 20230704, end: 20230705
  65. MORPHINE [Concomitant]
     Active Substance: MORPHINE
     Route: 042
     Dates: start: 20230705, end: 20230705
  66. MORPHINE [Concomitant]
     Active Substance: MORPHINE
     Route: 042
     Dates: start: 20230705, end: 20230707
  67. ANECREAM [Concomitant]
     Active Substance: LIDOCAINE
     Indication: Product used for unknown indication
     Route: 061
     Dates: start: 20230704, end: 20230704
  68. MUPIROCIN [Concomitant]
     Active Substance: MUPIROCIN
     Indication: Product used for unknown indication
     Dosage: UNK, BID
     Route: 061
     Dates: start: 20230706, end: 20230727
  69. PANTOPRAZOLE [Concomitant]
     Active Substance: PANTOPRAZOLE
     Indication: Product used for unknown indication
     Dosage: 19.2 MILLIGRAM, QD
     Route: 042
     Dates: start: 20230706, end: 20230801
  70. PLATELETS [Concomitant]
     Active Substance: HUMAN PLATELET, ALLOGENIC
     Indication: Product used for unknown indication
     Route: 042
     Dates: start: 20230706, end: 20230706

REACTIONS (1)
  - Epistaxis [Recovered/Resolved]

NARRATIVE: CASE EVENT DATE: 20230707
